FAERS Safety Report 18151694 (Version 1)
Quarter: 2020Q3

REPORT INFORMATION
  Report Type: Spontaneous
  Country: US (occurrence: US)
  Receive Date: 20200814
  Receipt Date: 20200814
  Transmission Date: 20201103
  Serious: No
  Sender: FDA-Public Use
  Company Number: US-BAYER-2020-157084

PATIENT
  Sex: Male

DRUGS (4)
  1. METHOTREXATE. [Concomitant]
     Active Substance: METHOTREXATE
  2. ALEVE [Suspect]
     Active Substance: NAPROXEN SODIUM
     Indication: PAIN
  3. ENBREL [Concomitant]
     Active Substance: ETANERCEPT
  4. REMICADE [Concomitant]
     Active Substance: INFLIXIMAB

REACTIONS (4)
  - Alopecia [Recovering/Resolving]
  - Lung disorder [Recovering/Resolving]
  - Drug ineffective [Recovering/Resolving]
  - Oral herpes [Recovering/Resolving]
